FAERS Safety Report 12189207 (Version 1)
Quarter: 2016Q1

REPORT INFORMATION
  Report Type: Spontaneous
  Country: US (occurrence: US)
  Receive Date: 20160317
  Receipt Date: 20160317
  Transmission Date: 20160526
  Serious: Yes (Other)
  Sender: FDA-Public Use
  Company Number: US-TARO-2016TAR00228

PATIENT
  Sex: Female

DRUGS (1)
  1. ETODOLAC TABLETS 400 MG [Suspect]
     Active Substance: ETODOLAC
     Indication: BACK PAIN
     Dosage: UNK
     Dates: start: 2015

REACTIONS (5)
  - Cystoscopy abnormal [Unknown]
  - Pollakiuria [Not Recovered/Not Resolved]
  - Bladder pain [Not Recovered/Not Resolved]
  - Vaginal inflammation [Unknown]
  - Chromaturia [Unknown]
